FAERS Safety Report 7994772-7 (Version None)
Quarter: 2011Q4

REPORT INFORMATION
  Report Type: 
  Country: None (occurrence: None)
  Receive Date: 20111220
  Receipt Date: 20111213
  Transmission Date: 20120403
  Serious: Yes (Hospitalization)
  Sender: FDA-Public Use
  Company Number: DK-PFIZER INC-2011302966

PATIENT
  Age: 66 Year
  Sex: Female

DRUGS (1)
  1. SUNITINIB MALATE [Suspect]
     Indication: METASTATIC RENAL CELL CARCINOMA
     Dosage: 37.5 MG, 1X/DAY FOR 28 DAYS HERAFTER PAUSE FOR 42 DAYS
     Dates: start: 20080101, end: 20081103

REACTIONS (3)
  - EMBOLISM VENOUS [None]
  - THROMBOCYTOPENIA [None]
  - CEREBRAL INFARCTION [None]
